FAERS Safety Report 8719873 (Version 2)
Quarter: 2012Q4

REPORT INFORMATION
  Report Type: 
  Country: US (occurrence: US)
  Receive Date: 20120813
  Receipt Date: 20121127
  Transmission Date: 20130627
  Serious: Yes (Hospitalization)
  Sender: FDA-Public Use
  Company Number: US-BAYER-2012-079722

PATIENT
  Age: 15 Year
  Sex: Female
  Weight: 72.56 kg

DRUGS (4)
  1. YAZ [Suspect]
     Indication: MENSTRUAL CYCLE MANAGEMENT
     Dosage: UNK
     Dates: start: 200904, end: 20090721
  2. YAZ [Suspect]
     Indication: HEAVY PERIODS
  3. CONCERTA [Concomitant]
     Indication: ATTENTION DEFICIT DISORDER
     Dosage: UNK
     Dates: start: 2000, end: 2003
  4. NAPROXEN [Concomitant]
     Indication: LEG PAIN
     Dosage: UNK
     Dates: start: 200907

REACTIONS (2)
  - Pulmonary embolism [None]
  - Deep vein thrombosis [None]
